FAERS Safety Report 21074609 (Version 1)
Quarter: 2022Q3

REPORT INFORMATION
  Report Type: Other
  Country: ES (occurrence: ES)
  Receive Date: 20220713
  Receipt Date: 20220713
  Transmission Date: 20221027
  Serious: Yes (Hospitalization)
  Sender: FDA-Public Use
  Company Number: None

PATIENT

DRUGS (5)
  1. LEVETIRACETAM [Suspect]
     Active Substance: LEVETIRACETAM
     Indication: Epilepsy
     Dosage: 200 MILLIGRAM, BID
     Route: 065
     Dates: start: 202111, end: 20220519
  2. BACLOFEN [Suspect]
     Active Substance: BACLOFEN
     Indication: Muscle spasticity
     Dosage: 30 MILLIGRAM, QD
     Route: 065
     Dates: start: 2016
  3. IPRATROPIUM BROMIDE [Concomitant]
     Active Substance: IPRATROPIUM BROMIDE
     Indication: Bronchospasm
     Dosage: 250 MILLIGRAM, BID
     Route: 065
     Dates: start: 202111, end: 20220513
  4. GLUTAFERRO [ASCORBIC ACID;DOCUSATE SODIUM;FERROUS GLUTAMATE] [Concomitant]
     Indication: Anaemia
     Dosage: 2 MILLILITER, QD
     Route: 065
     Dates: start: 20200814
  5. COLISTIMETATO DE SODIO [Concomitant]
     Indication: Infective exacerbation of bronchiectasis
     Dosage: 1 DOSAGE FORM, QD
     Route: 065
     Dates: start: 202111

REACTIONS (1)
  - Neuroleptic malignant syndrome [Recovered/Resolved]

NARRATIVE: CASE EVENT DATE: 20220511
